FAERS Safety Report 8234899-8 (Version None)
Quarter: 2012Q1

REPORT INFORMATION
  Report Type: 
  Country: None (occurrence: None)
  Receive Date: 20120326
  Receipt Date: 20120320
  Transmission Date: 20120608
  Serious: Yes (Hospitalization, Other)
  Sender: FDA-Public Use
  Company Number: IT-PFIZER INC-2012073519

PATIENT
  Age: 89 Year
  Sex: Male

DRUGS (1)
  1. VIAGRA [Suspect]
     Dosage: 25 MG, SINGLE
     Route: 048
     Dates: start: 20111120

REACTIONS (3)
  - DYSARTHRIA [None]
  - CONFUSIONAL STATE [None]
  - ISCHAEMIC STROKE [None]
